FAERS Safety Report 7217203-3 (Version None)
Quarter: 2011Q1

REPORT INFORMATION
  Report Type: 
  Country: None (occurrence: None)
  Receive Date: 20110110
  Receipt Date: 20101231
  Transmission Date: 20110831
  Serious: Yes (Life-Threatening, Other)
  Sender: FDA-Public Use
  Company Number: FR-PFIZER INC-2010110246

PATIENT
  Age: 87 Year
  Sex: Female

DRUGS (5)
  1. AMOXICILLIN [Concomitant]
     Indication: PREMEDICATION
     Dosage: UNK
     Route: 042
     Dates: start: 20100226
  2. OFLOCET [Suspect]
     Indication: PREMEDICATION
     Dosage: 1 DF, 1X/DAY
     Route: 042
     Dates: start: 20100226
  3. ATARAX [Suspect]
     Indication: PREMEDICATION
     Dosage: 1 DF, 1X/DAY
     Route: 048
     Dates: start: 20100226
  4. NEO-SYNEPHRINE OPHTHALMICS [Concomitant]
     Indication: PREMEDICATION
     Dosage: UNK
     Route: 047
     Dates: start: 20100226
  5. TROPICAMIDE [Concomitant]
     Indication: PREMEDICATION
     Dosage: UNK
     Route: 047
     Dates: start: 20100226

REACTIONS (2)
  - ANAPHYLACTIC SHOCK [None]
  - SKIN TEST [None]
